FAERS Safety Report 6016253-2 (Version None)
Quarter: 2008Q4

REPORT INFORMATION
  Report Type: 
  Country: None (occurrence: None)
  Receive Date: 20081218
  Receipt Date: 20081203
  Transmission Date: 20090506
  Serious: Yes (Death, Congenital Anomaly)
  Sender: FDA-Public Use
  Company Number: ALA_00221_2008

PATIENT

DRUGS (1)
  1. ROWASA [Suspect]
     Indication: DRUG EXPOSURE DURING PREGNANCY
     Dosage: DF TRANSPLACENTAL
     Route: 064
     Dates: end: 20080701

REACTIONS (5)
  - ABORTION INDUCED [None]
  - CONGENITAL MUSCULOSKELETAL ANOMALY [None]
  - FOETAL MALFORMATION [None]
  - MATERNAL DRUGS AFFECTING FOETUS [None]
  - TALIPES [None]
